FAERS Safety Report 6500988-9 (Version None)
Quarter: 2009Q4

REPORT INFORMATION
  Report Type: 
  Country: None (occurrence: None)
  Receive Date: 20091216
  Receipt Date: 20090518
  Transmission Date: 20100525
  Serious: No
  Sender: FDA-Public Use
  Company Number: A0784761A

PATIENT
  Age: 53 Year
  Sex: Male

DRUGS (1)
  1. COMMIT [Suspect]
     Dates: start: 20090517, end: 20090517

REACTIONS (4)
  - EXPIRED DRUG ADMINISTERED [None]
  - OROPHARYNGEAL PAIN [None]
  - PAIN [None]
  - PALPITATIONS [None]
